FAERS Safety Report 7989024-5 (Version None)
Quarter: 2011Q4

REPORT INFORMATION
  Report Type: 
  Country: None (occurrence: None)
  Receive Date: 20111219
  Receipt Date: 20111208
  Transmission Date: 20120403
  Serious: Yes (Hospitalization, Other)
  Sender: FDA-Public Use
  Company Number: PHHY2011US18086

PATIENT
  Sex: Female
  Weight: 54.92 kg

DRUGS (15)
  1. AMITRIPTYLINE HCL [Concomitant]
     Dosage: UNK
     Route: 048
     Dates: start: 20110303
  2. CARDIZEM LA [Concomitant]
     Dosage: UNK
     Route: 048
     Dates: start: 20110127
  3. ELAVIL [Concomitant]
  4. FOLIC ACID [Concomitant]
     Dosage: UNK
     Route: 048
     Dates: start: 20110127
  5. EXJADE [Suspect]
     Indication: IRON OVERLOAD
  6. OXYCONTIN [Concomitant]
     Dosage: 160 MG,
     Route: 048
     Dates: start: 20110127
  7. FLEXERIL [Concomitant]
     Dosage: UNK DAILY
     Route: 048
     Dates: start: 20110303
  8. ASPIRIN [Concomitant]
     Dosage: UNK
     Route: 048
     Dates: start: 20110303
  9. DIPHENHYDRAMINE HCL [Concomitant]
     Dosage: UNK
     Route: 048
     Dates: start: 20110127
  10. BENADRYL [Concomitant]
  11. TOPAMAX [Concomitant]
     Dosage: UNK
     Route: 048
     Dates: start: 20110303
  12. DILAUDID [Concomitant]
     Dosage: UNK
     Route: 048
     Dates: start: 20110127
  13. EXJADE [Suspect]
     Indication: SICKLE CELL ANAEMIA
     Dosage: 1000 MG, DAILY
     Route: 048
     Dates: start: 20110121
  14. ZOFRAN [Concomitant]
     Dosage: UNK
     Route: 048
     Dates: start: 20110127
  15. KEPPRA [Concomitant]
     Dosage: 1500 MG, DAILY
     Route: 048
     Dates: start: 20110127

REACTIONS (6)
  - CONVULSION [None]
  - ABDOMINAL PAIN UPPER [None]
  - DIARRHOEA [None]
  - VOMITING [None]
  - SICKLE CELL ANAEMIA WITH CRISIS [None]
  - NAUSEA [None]
